FAERS Safety Report 9752781 (Version 1)
Quarter: 2013Q4

REPORT INFORMATION
  Report Type: Report from Study
  Country: KR (occurrence: KR)
  Receive Date: 20131213
  Receipt Date: 20131213
  Transmission Date: 20140711
  Serious: Yes (Other)
  Sender: FDA-Public Use
  Company Number: KR-SA-2013SA126529

PATIENT
  Age: 64 Year
  Sex: Female
  Weight: 65 kg

DRUGS (2)
  1. LANTUS [Suspect]
     Indication: DIABETES MELLITUS
     Dosage: DOSE:10 UNIT(S)
     Route: 058
     Dates: start: 20131005, end: 20131025
  2. LANTUS [Suspect]
     Indication: HYSTEROTOMY
     Dosage: DOSE:10 UNIT(S)
     Route: 058
     Dates: start: 20131005, end: 20131025

REACTIONS (1)
  - Uterine haemorrhage [Unknown]
